FAERS Safety Report 20912000 (Version 2)
Quarter: 2022Q3

REPORT INFORMATION
  Report Type: Spontaneous
  Country: US (occurrence: None)
  Receive Date: 20220603
  Receipt Date: 20220715
  Transmission Date: 20221027
  Serious: Yes (Other)
  Sender: FDA-Public Use
  Company Number: 2022A202258

PATIENT
  Sex: Female
  Weight: 92.5 kg

DRUGS (1)
  1. IMFINZI [Suspect]
     Active Substance: DURVALUMAB
     Indication: Non-small cell lung cancer stage III
     Dosage: 1500.0MG ONCE/SINGLE ADMINISTRATION
     Route: 042
     Dates: start: 20220422

REACTIONS (23)
  - Pneumonitis [Unknown]
  - Blood glucose increased [Unknown]
  - Thirst [Unknown]
  - Oxygen saturation abnormal [Unknown]
  - Life expectancy shortened [Unknown]
  - Weight increased [Unknown]
  - Condition aggravated [Unknown]
  - Therapeutic procedure [Unknown]
  - Dyspnoea [Unknown]
  - Swelling [Unknown]
  - Pollakiuria [Unknown]
  - Fatigue [Unknown]
  - Fatigue [Unknown]
  - Hyperhidrosis [Unknown]
  - Irritability [Unknown]
  - Hunger [Unknown]
  - Depression [Unknown]
  - Anxiety [Unknown]
  - Insomnia [Unknown]
  - Dyspnoea [Unknown]
  - Wheezing [Unknown]
  - Rectal injury [Unknown]
  - Dysuria [Unknown]
